FAERS Safety Report 6465820-0 (Version None)
Quarter: 2009Q4

REPORT INFORMATION
  Report Type: 
  Country: None (occurrence: None)
  Receive Date: 20091124
  Receipt Date: 20091116
  Transmission Date: 20100525
  Serious: Yes (Death)
  Sender: FDA-Public Use
  Company Number: 2009US004082

PATIENT
  Sex: Male

DRUGS (1)
  1. AMBISOME [Suspect]
     Indication: MENINGITIS CRYPTOCOCCAL
     Dosage: 5 MG/KG, UID/QD ; 5 MG/KG, QOD
     Dates: start: 20090701

REACTIONS (3)
  - ASPIRATION [None]
  - DEVICE RELATED SEPSIS [None]
  - PSEUDOMONAS INFECTION [None]
